FAERS Safety Report 4962358-4 (Version None)
Quarter: 2006Q2

REPORT INFORMATION
  Report Type: 
  Country: None (occurrence: None)
  Receive Date: 20060404
  Receipt Date: 20060328
  Transmission Date: 20061013
  Serious: Yes (Life-Threatening)
  Sender: FDA-Public Use
  Company Number: PHBS2006ES04550

PATIENT
  Age: 73 Year
  Sex: Female

DRUGS (5)
  1. DIOVAN [Suspect]
     Dosage: 80 MG/DAY
     Route: 048
  2. DICLOFENAC [Suspect]
  3. ALDACTONE [Suspect]
     Dosage: 100 MG/DAY
     Route: 048
  4. AMERIDE [Suspect]
     Dosage: 1 TAB/DAY
     Route: 048
  5. SEGURIL [Suspect]
     Dosage: 40 MG/DAY
     Route: 048

REACTIONS (3)
  - HYPERKALAEMIA [None]
  - HYPONATRAEMIA [None]
  - RENAL FAILURE ACUTE [None]
